FAERS Safety Report 9321526 (Version 1)
Quarter: 2013Q2

REPORT INFORMATION
  Report Type: Report from Study
  Country: DE (occurrence: DE)
  Receive Date: 20130531
  Receipt Date: 20130531
  Transmission Date: 20140414
  Serious: Yes (Hospitalization, Other)
  Sender: FDA-Public Use
  Company Number: DE-BRISTOL-MYERS SQUIBB COMPANY-18809541

PATIENT
  Age: 45 Year
  Sex: Male
  Weight: 94 kg

DRUGS (4)
  1. ORENCIA FOR INJ [Suspect]
     Indication: RHEUMATOID ARTHRITIS
     Dosage: LAST INF: 22MAR2013
     Route: 042
     Dates: start: 20120723
  2. METHOTREXATE SODIUM INJ [Suspect]
     Indication: RHEUMATOID ARTHRITIS
     Dosage: SOLUTION FOR INJ
     Route: 058
     Dates: start: 20110509
  3. PREDNISOLONE [Concomitant]
     Indication: RHEUMATOID ARTHRITIS
     Dosage: TABS
     Route: 048
     Dates: start: 20130323
  4. CODEINE PHOSPHATE + DICLOFENAC SODIUM [Concomitant]
     Indication: RHEUMATOID ARTHRITIS
     Route: 048
     Dates: start: 20130305

REACTIONS (4)
  - Pancreatic cyst [Not Recovered/Not Resolved]
  - Mediastinal cyst [Not Recovered/Not Resolved]
  - Cardiac failure [Not Recovered/Not Resolved]
  - Bronchopneumonia [Recovered/Resolved]
